FAERS Safety Report 11864987 (Version 1)
Quarter: 2015Q4

REPORT INFORMATION
  Report Type: Spontaneous
  Country: JP (occurrence: JP)
  Receive Date: 20151223
  Receipt Date: 20151223
  Transmission Date: 20160305
  Serious: Yes (Other)
  Sender: FDA-Public Use
  Company Number: JP-TEVA-620512ISR

PATIENT
  Age: 3 Month
  Sex: Male

DRUGS (2)
  1. NITRIC ACID [Suspect]
     Active Substance: NITRIC ACID
     Route: 065
  2. EPOPROSTENOL. [Suspect]
     Active Substance: EPOPROSTENOL
     Route: 065

REACTIONS (3)
  - Pulmonary hypertension [Recovered/Resolved]
  - Cardiac failure high output [Recovered/Resolved]
  - Drug ineffective [Unknown]
